FAERS Safety Report 11699618 (Version 1)
Quarter: 2015Q4

REPORT INFORMATION
  Report Type: Spontaneous
  Country: FR (occurrence: FR)
  Receive Date: 20151105
  Receipt Date: 20151105
  Transmission Date: 20160304
  Serious: Yes (Hospitalization)
  Sender: FDA-Public Use
  Company Number: FR-009507513-1511FRA001884

PATIENT
  Age: 58 Year
  Sex: Female

DRUGS (10)
  1. ZOPHREN (ONDANSETRON HYDROCHLORIDE) [Suspect]
     Active Substance: ONDANSETRON HYDROCHLORIDE
     Indication: ANTIBIOTIC THERAPY
     Dosage: 1 DF, QD
     Route: 042
     Dates: start: 20150831, end: 20150908
  2. BACTRIM [Suspect]
     Active Substance: SULFAMETHOXAZOLE\TRIMETHOPRIM
     Indication: ANTIBIOTIC THERAPY
     Dosage: 1 DF, QD
     Route: 048
     Dates: start: 20150831, end: 20150909
  3. DAPTOMYCIN. [Suspect]
     Active Substance: DAPTOMYCIN
     Indication: ANTIBIOTIC THERAPY
     Dosage: 1 DF, QD
     Route: 042
     Dates: start: 20150902, end: 20150909
  4. FOLIC ACID. [Concomitant]
     Active Substance: FOLIC ACID
  5. TOPALGIC (TRAMADOL HYDROCHLORIDE) [Concomitant]
     Active Substance: TRAMADOL
  6. BRICANYL [Concomitant]
     Active Substance: TERBUTALINE SULFATE
  7. LERCANIDIPINE [Concomitant]
     Active Substance: LERCANIDIPINE
  8. ATARAX [Concomitant]
     Active Substance: HYDROXYZINE\HYDROXYZINE HYDROCHLORIDE
  9. ATROVENT [Concomitant]
     Active Substance: IPRATROPIUM BROMIDE
  10. CETIRIZINE HYDROCHLORIDE. [Concomitant]
     Active Substance: CETIRIZINE HYDROCHLORIDE

REACTIONS (3)
  - Pain [Recovering/Resolving]
  - Pruritus [Recovering/Resolving]
  - Erythema [Recovering/Resolving]

NARRATIVE: CASE EVENT DATE: 20150903
